FAERS Safety Report 9735494 (Version 2)
Quarter: 2015Q3

REPORT INFORMATION
  Report Type: Spontaneous
  Country: US (occurrence: US)
  Receive Date: 20131206
  Receipt Date: 20150804
  Transmission Date: 20151125
  Serious: No
  Sender: FDA-Public Use
  Company Number: US-GILEAD-2009-0023346

PATIENT
  Age: 74 Year
  Sex: Female
  Weight: 69.85 kg

DRUGS (19)
  1. REVATIO [Concomitant]
     Active Substance: SILDENAFIL CITRATE
  2. VITA-LEA [Concomitant]
  3. LETAIRIS [Suspect]
     Active Substance: AMBRISENTAN
     Indication: PULMONARY ARTERIAL HYPERTENSION
     Route: 048
     Dates: start: 20090702
  4. LOVENOX [Concomitant]
     Active Substance: ENOXAPARIN SODIUM
  5. HYDROCODONE [Concomitant]
     Active Substance: HYDROCODONE
  6. DIGOXIN. [Concomitant]
     Active Substance: DIGOXIN
  7. BEANO [Concomitant]
     Active Substance: ASPERGILLUS NIGER .ALPHA.-GALACTOSIDASE
  8. WARFARIN [Concomitant]
     Active Substance: WARFARIN
  9. ERGOCALCIFEROL/NICOTINAMIDE/RETINOL/ASCORBIC ACID/FOLIC ACID/PANTHENOL/RIBOFLAVIN/THIAMINE HYDROCHLO [Concomitant]
  10. KLOR-CON [Concomitant]
     Active Substance: POTASSIUM CHLORIDE
  11. LANOXIN [Concomitant]
     Active Substance: DIGOXIN
  12. VITAMIN B COMPLEX [Concomitant]
     Active Substance: CYANOCOBALAMIN\DEXPANTHENOL\NIACINAMIDE\PYRIDOXINE HYDROCHLORIDE\RIBOFLAVIN 5^-PHOSPHATE SODIUM\THIAMINE HYDROCHLORIDE\VITAMIN B COMPLEX
  13. OXYCONTIN [Concomitant]
     Active Substance: OXYCODONE HYDROCHLORIDE
  14. CALCIUM [Concomitant]
     Active Substance: CALCIUM
  15. STOOL SOFTENER [Concomitant]
     Active Substance: DOCUSATE CALCIUM
  16. TORSEMIDE. [Concomitant]
     Active Substance: TORSEMIDE
  17. VERAPAMIL [Concomitant]
     Active Substance: VERAPAMIL HYDROCHLORIDE
  18. DEMADEX [Concomitant]
     Active Substance: TORSEMIDE
  19. QUINAPRIL [Concomitant]
     Active Substance: QUINAPRIL\QUINAPRIL HYDROCHLORIDE

REACTIONS (1)
  - Nasal congestion [Unknown]
